FAERS Safety Report 19365533 (Version 1)
Quarter: 2021Q2

REPORT INFORMATION
  Report Type: Spontaneous
  Country: US (occurrence: US)
  Receive Date: 20210603
  Receipt Date: 20210603
  Transmission Date: 20210717
  Serious: Yes (Hospitalization)
  Sender: FDA-Public Use
  Company Number: None

PATIENT
  Age: 67 Year
  Sex: Female

DRUGS (1)
  1. CASIRIVIMAB 1200 MG?IMDEVIMAB 1200 MG (REGENERON) [Suspect]
     Active Substance: CASIRIVIMAB\IMDEVIMAB
     Indication: COVID-19
     Dosage: ?          OTHER FREQUENCY:ONCE;?
     Route: 041
     Dates: start: 20210511

REACTIONS (6)
  - Chest discomfort [None]
  - Fatigue [None]
  - Asthenia [None]
  - Rash [None]
  - Infusion related reaction [None]
  - Paraesthesia [None]

NARRATIVE: CASE EVENT DATE: 20210511
